FAERS Safety Report 24375518 (Version 2)
Quarter: 2024Q3

REPORT INFORMATION
  Report Type: Spontaneous
  Country: US (occurrence: US)
  Receive Date: 20240928
  Receipt Date: 20240928
  Transmission Date: 20241016
  Serious: Yes (Other)
  Sender: ROCHE
  Company Number: US-ROCHE-10000089555

PATIENT
  Age: 23 Year
  Sex: Male

DRUGS (4)
  1. RITUXIMAB [Suspect]
     Active Substance: RITUXIMAB
     Indication: Connective tissue disorder
     Route: 065
  2. RITUXIMAB [Suspect]
     Active Substance: RITUXIMAB
     Indication: Interstitial lung disease
  3. PREDNISONE [Suspect]
     Active Substance: PREDNISONE
     Indication: Connective tissue disorder
     Route: 065
  4. PREDNISONE [Suspect]
     Active Substance: PREDNISONE
     Indication: Interstitial lung disease

REACTIONS (3)
  - Neuroendocrine carcinoma [Unknown]
  - Haemophilus infection [Unknown]
  - Metastases to central nervous system [Unknown]
